FAERS Safety Report 21840372 (Version 1)
Quarter: 2023Q1

REPORT INFORMATION
  Report Type: Spontaneous
  Country: GB (occurrence: GB)
  Receive Date: 20230110
  Receipt Date: 20230110
  Transmission Date: 20230418
  Serious: Yes (Other)
  Sender: FDA-Public Use
  Company Number: GB-ENDO PHARMACEUTICALS INC-2022-006834

PATIENT
  Age: 67 Year
  Sex: Male
  Weight: 111 kg

DRUGS (1)
  1. FORTESTA [Suspect]
     Active Substance: TESTOSTERONE
     Indication: Hypopituitarism
     Dosage: 60 MG, OD (IN MORNING)
     Route: 065
     Dates: start: 20080101

REACTIONS (3)
  - Insomnia [Not Recovered/Not Resolved]
  - Medication error [Unknown]
  - Off label use [Unknown]
